FAERS Safety Report 6322166-9 (Version None)
Quarter: 2009Q3

REPORT INFORMATION
  Report Type: 
  Country: None (occurrence: None)
  Receive Date: 20090824
  Receipt Date: 20090202
  Transmission Date: 20100115
  Serious: No
  Sender: FDA-Public Use
  Company Number: US-ABBOTT-09P-163-0499927-00

PATIENT
  Sex: Female
  Weight: 65.83 kg

DRUGS (4)
  1. NIASPAN [Suspect]
     Indication: BLOOD CHOLESTEROL INCREASED
     Route: 048
     Dates: start: 20081114, end: 20081214
  2. NIASPAN [Suspect]
     Route: 048
     Dates: start: 20081214, end: 20081219
  3. NIASPAN [Suspect]
     Indication: BLOOD CHOLESTEROL INCREASED
     Route: 048
     Dates: start: 20081214, end: 20081219
  4. THYROID TAB [Concomitant]
     Indication: HYPOTHYROIDISM

REACTIONS (5)
  - BURNING SENSATION [None]
  - FACIAL PAIN [None]
  - RASH [None]
  - SKIN EXFOLIATION [None]
  - SKIN FISSURES [None]
